FAERS Safety Report 9366988 (Version 1)
Quarter: 2013Q2

REPORT INFORMATION
  Report Type: Report from Study
  Country: IT (occurrence: IT)
  Receive Date: 20130625
  Receipt Date: 20130625
  Transmission Date: 20140414
  Serious: Yes (Death)
  Sender: FDA-Public Use
  Company Number: IT-GLAXOSMITHKLINE-B0902264A

PATIENT
  Age: 19 Year
  Sex: Male

DRUGS (2)
  1. BUSULFAN [Suspect]
     Indication: EWING^S SARCOMA
     Dosage: 1MGK PER DAY
     Route: 065
  2. MELPHALAN [Suspect]
     Dosage: 140MGK PER DAY
     Route: 065

REACTIONS (1)
  - Multi-organ failure [Fatal]
